FAERS Safety Report 8075209-9 (Version None)
Quarter: 2012Q1

REPORT INFORMATION
  Report Type: 
  Country: None (occurrence: None)
  Receive Date: 20120127
  Receipt Date: 20120123
  Transmission Date: 20120608
  Serious: No
  Sender: FDA-Public Use
  Company Number: US-PFIZER INC-2012014480

PATIENT
  Sex: Male
  Weight: 93.424 kg

DRUGS (4)
  1. REQUIP [Concomitant]
     Indication: RESTLESS LEGS SYNDROME
     Dosage: 4 MG, DAILY
  2. METHOTREXATE [Concomitant]
     Indication: RHEUMATOID ARTHRITIS
     Dosage: 12 MG, WEEKLY
  3. HUMIRA [Concomitant]
     Indication: RHEUMATOID ARTHRITIS
     Dosage: UNK DOSE EVERY OTHER WEEK
  4. CELEBREX [Suspect]
     Indication: RHEUMATOID ARTHRITIS
     Dosage: 200 MG, DAILY
     Dates: end: 20120101

REACTIONS (1)
  - PAIN [None]
